FAERS Safety Report 21224084 (Version 1)
Quarter: 2022Q3

REPORT INFORMATION
  Report Type: Spontaneous
  Country: US (occurrence: US)
  Receive Date: 20220817
  Receipt Date: 20220817
  Transmission Date: 20221027
  Serious: No
  Sender: FDA-Public Use
  Company Number: US-SA-2022MK000157

PATIENT
  Age: 71 Year
  Sex: Male
  Weight: 93.070 kg

DRUGS (4)
  1. AFREZZA [Suspect]
     Active Substance: INSULIN HUMAN
     Indication: Type 2 diabetes mellitus
     Dates: start: 20220421, end: 20220523
  2. JARDIANCE [Concomitant]
     Active Substance: EMPAGLIFLOZIN
     Indication: Type 2 diabetes mellitus
  3. LANTUS [Concomitant]
     Active Substance: INSULIN GLARGINE
     Indication: Type 2 diabetes mellitus
     Route: 058
  4. METFORMIN [Concomitant]
     Active Substance: METFORMIN HYDROCHLORIDE
     Indication: Type 2 diabetes mellitus

REACTIONS (3)
  - Insomnia [Unknown]
  - Cough [Unknown]
  - Oropharyngeal pain [Unknown]
